FAERS Safety Report 5488616-5 (Version None)
Quarter: 2007Q4

REPORT INFORMATION
  Report Type: 
  Country: None (occurrence: None)
  Receive Date: 20071017
  Receipt Date: 20071003
  Transmission Date: 20080405
  Serious: Yes (Hospitalization)
  Sender: FDA-Public Use
  Company Number: DE-GENENTECH-248261

PATIENT
  Sex: Female
  Weight: 79.7 kg

DRUGS (4)
  1. BEVACIZUMAB [Suspect]
     Indication: OVARIAN CANCER
     Dosage: 600 MG, UNK
     Route: 042
     Dates: start: 20070727
  2. PACLITAXEL [Suspect]
     Indication: OVARIAN CANCER
     Dosage: 330 MG, UNK
     Route: 042
     Dates: start: 20070727
  3. CARBOPLATIN [Suspect]
     Indication: OVARIAN CANCER
     Dosage: 765 MG, UNK
     Route: 042
     Dates: start: 20070727
  4. LISINOPRIL AND HYDROCHLOROTHIAZIDE [Concomitant]
     Indication: DRUG USE FOR UNKNOWN INDICATION

REACTIONS (1)
  - HYPERTENSION [None]
